FAERS Safety Report 15759811 (Version 1)
Quarter: 2018Q4

REPORT INFORMATION
  Report Type: Spontaneous
  Country: US (occurrence: US)
  Receive Date: 20181226
  Receipt Date: 20181226
  Transmission Date: 20190205
  Serious: No
  Sender: FDA-Public Use
  Company Number: US-DRREDDYS-USA/USA/18/0101014

PATIENT
  Age: 25 Year
  Sex: Male
  Weight: 75.5 kg

DRUGS (1)
  1. NICOTINE. [Suspect]
     Active Substance: NICOTINE
     Indication: SMOKING CESSATION THERAPY
     Route: 062
     Dates: start: 20180604

REACTIONS (4)
  - Abnormal dreams [Recovering/Resolving]
  - Insomnia [Unknown]
  - Tobacco withdrawal symptoms [Recovered/Resolved]
  - Nicotine dependence [Recovered/Resolved]

NARRATIVE: CASE EVENT DATE: 20180604
